FAERS Safety Report 8117827-5 (Version None)
Quarter: 2012Q1

REPORT INFORMATION
  Report Type: 
  Country: None (occurrence: None)
  Receive Date: 20120207
  Receipt Date: 20120124
  Transmission Date: 20120608
  Serious: Yes (Other)
  Sender: FDA-Public Use
  Company Number: ES-RANBAXY-2012R1-52220

PATIENT
  Age: 25 Year
  Sex: Female

DRUGS (1)
  1. NAPROXEN [Suspect]
     Indication: DYSMENORRHOEA
     Dosage: 500 MG, TID
     Route: 065

REACTIONS (1)
  - PHOTOSENSITIVITY REACTION [None]
